FAERS Safety Report 6388307-2 (Version None)
Quarter: 2009Q4

REPORT INFORMATION
  Report Type: 
  Country: None (occurrence: None)
  Receive Date: 20091001
  Receipt Date: 20091001
  Transmission Date: 20100525
  Serious: Yes (Hospitalization)
  Sender: FDA-Public Use
  Company Number: None

PATIENT
  Sex: Female
  Weight: 64.2 kg

DRUGS (1)
  1. TRASTUZUMAB [Suspect]
     Indication: BREAST CANCER
     Dosage: 6MG/KG EVERY THREE WEEKS IV DRIP
     Route: 041
     Dates: start: 20090713, end: 20090914

REACTIONS (2)
  - COUGH [None]
  - PLEURAL EFFUSION [None]
